FAERS Safety Report 9799405 (Version 4)
Quarter: 2014Q1

REPORT INFORMATION
  Report Type: Report from Study
  Country: US (occurrence: US)
  Receive Date: 20140106
  Receipt Date: 20140124
  Transmission Date: 20141002
  Serious: Yes (Death, Hospitalization)
  Sender: FDA-Public Use
  Company Number: US-ACTELION-A-NJ2013-92595

PATIENT
  Age: 58 Year
  Sex: Female

DRUGS (1)
  1. VELETRI [Suspect]
     Indication: PULMONARY ARTERIAL HYPERTENSION
     Dosage: 7 NG/KG, PRN
     Route: 042
     Dates: start: 20131207

REACTIONS (5)
  - Pneumonia [Fatal]
  - Acidosis [Unknown]
  - Condition aggravated [Unknown]
  - Hypoxia [Unknown]
  - Dizziness [Unknown]
